FAERS Safety Report 11155407 (Version 2)
Quarter: 2015Q2

REPORT INFORMATION
  Report Type: Spontaneous
  Country: BR (occurrence: BR)
  Receive Date: 20150602
  Receipt Date: 20150609
  Transmission Date: 20150821
  Serious: Yes (Hospitalization, Other)
  Sender: FDA-Public Use
  Company Number: BR-SA-2015SA071585

PATIENT
  Age: 56 Year
  Sex: Male
  Weight: 90.3 kg

DRUGS (15)
  1. FOLIC ACID. [Concomitant]
     Active Substance: FOLIC ACID
  2. LEXOTAN [Concomitant]
     Active Substance: BROMAZEPAM
  3. BACTRIM [Concomitant]
     Active Substance: SULFAMETHOXAZOLE\TRIMETHOPRIM
  4. NPH INSULIN [Concomitant]
     Active Substance: INSULIN BEEF
  5. METOPROLOL SUCCINATE. [Concomitant]
     Active Substance: METOPROLOL SUCCINATE
  6. TACROLIMUS. [Concomitant]
     Active Substance: TACROLIMUS
  7. THYMOGLOBULINE [Suspect]
     Active Substance: LAPINE T-LYMPHOCYTE IMMUNE GLOBULIN
     Dosage: 100 MG, 220 ML IN 4 HOURS
     Route: 041
     Dates: start: 20150514, end: 20150517
  8. SODIUM BICARBONATE. [Concomitant]
     Active Substance: SODIUM BICARBONATE
  9. BROMOPRIDE [Concomitant]
     Active Substance: BROMOPRIDE
  10. METICORTEN [Concomitant]
     Active Substance: PREDNISONE
  11. SERTRALINE [Concomitant]
     Active Substance: SERTRALINE HYDROCHLORIDE
  12. ZOLPIDEM [Concomitant]
     Active Substance: ZOLPIDEM\ZOLPIDEM TARTRATE
  13. PROPAFENONE. [Concomitant]
     Active Substance: PROPAFENONE
  14. CYMEVENE [Concomitant]
     Active Substance: GANCICLOVIR
  15. OMEPRAZOLE. [Concomitant]
     Active Substance: OMEPRAZOLE

REACTIONS (4)
  - Hospitalisation [Unknown]
  - Chills [Recovered/Resolved]
  - Tremor [Recovered/Resolved]
  - Pallor [Recovered/Resolved]

NARRATIVE: CASE EVENT DATE: 20150517
